FAERS Safety Report 5192713-1 (Version None)
Quarter: 2006Q4

REPORT INFORMATION
  Report Type: 
  Country: None (occurrence: None)
  Receive Date: 20061228
  Receipt Date: 20061218
  Transmission Date: 20070319
  Serious: Yes (Other)
  Sender: FDA-Public Use
  Company Number: PHHO2006VE21550

PATIENT
  Sex: Female

DRUGS (2)
  1. ZELMAC / HTF 919A [Suspect]
     Dosage: 6 MG, BID
     Route: 048
  2. AGIOLAX [Concomitant]

REACTIONS (2)
  - INFLUENZA LIKE ILLNESS [None]
  - STOMACH DISCOMFORT [None]
